FAERS Safety Report 14991514 (Version 1)
Quarter: 2018Q2

REPORT INFORMATION
  Report Type: Spontaneous
  Country: US (occurrence: US)
  Receive Date: 20180608
  Receipt Date: 20180608
  Transmission Date: 20180711
  Serious: Yes (Hospitalization)
  Sender: FDA-Public Use
  Company Number: US-GLAXOSMITHKLINE-US2018101657

PATIENT
  Age: 67 Year
  Sex: Male

DRUGS (7)
  1. SINGULAIR [Concomitant]
     Active Substance: MONTELUKAST SODIUM
  2. VENTOLIN HFA [Suspect]
     Active Substance: ALBUTEROL SULFATE
     Indication: PRODUCT USED FOR UNKNOWN INDICATION
  3. SPIRIVA [Concomitant]
     Active Substance: TIOTROPIUM BROMIDE MONOHYDRATE
  4. ADVAIR HFA [Concomitant]
     Active Substance: FLUTICASONE PROPIONATE\SALMETEROL XINAFOATE
  5. METOFORMIN [Concomitant]
     Active Substance: METFORMIN HYDROCHLORIDE
  6. CLARITINE [Concomitant]
     Active Substance: LORATADINE
  7. BENZONATATE. [Concomitant]
     Active Substance: BENZONATATE

REACTIONS (5)
  - Dyspnoea [Unknown]
  - Biopsy lung [Recovering/Resolving]
  - Weight decreased [Unknown]
  - Lung disorder [Unknown]
  - Oxygen saturation decreased [Unknown]

NARRATIVE: CASE EVENT DATE: 201802
